FAERS Safety Report 8608323 (Version 3)
Quarter: 2013Q1

REPORT INFORMATION
  Report Type: Report from Study
  Country: CA (occurrence: CA)
  Receive Date: 20120611
  Receipt Date: 20130220
  Transmission Date: 20140127
  Serious: Yes (Hospitalization, Other)
  Sender: FDA-Public Use
  Company Number: CA-ROCHE-1072424

PATIENT
  Age: 58 Year
  Sex: Female
  Weight: 54.48 kg

DRUGS (9)
  1. RITUXAN [Suspect]
     Indication: RHEUMATOID ARTHRITIS
     Route: 042
     Dates: start: 20110901
  2. PLAQUENIL [Concomitant]
  3. PREVACID [Concomitant]
  4. VITAMIN D [Concomitant]
  5. AMERGE [Concomitant]
     Indication: MIGRAINE
  6. DIPHENHYDRAMINE HCL [Concomitant]
     Route: 048
     Dates: start: 20121003, end: 20121003
  7. DIPHENHYDRAMINE HCL [Concomitant]
     Route: 048
     Dates: start: 20110901
  8. METHYLPREDNISOLONE [Concomitant]
     Route: 042
     Dates: start: 20121003, end: 20121003
  9. METHYLPREDNISOLONE [Concomitant]
     Route: 042
     Dates: start: 20110901

REACTIONS (4)
  - Intestinal operation [Unknown]
  - Pulmonary embolism [Recovered/Resolved]
  - Arthralgia [Unknown]
  - Malaise [Unknown]
